FAERS Safety Report 9218038 (Version 1)
Quarter: 2013Q2

REPORT INFORMATION
  Report Type: Spontaneous
  Country: US (occurrence: US)
  Receive Date: 20130408
  Receipt Date: 20130408
  Transmission Date: 20140414
  Serious: No
  Sender: FDA-Public Use
  Company Number: US-B.I. PHARMACEUTICALS,INC./RIDGEFIELD-2013-BI-09363BP

PATIENT
  Sex: Female
  Weight: 75 kg

DRUGS (12)
  1. SPIRIVA [Suspect]
     Indication: CHRONIC OBSTRUCTIVE PULMONARY DISEASE
     Dosage: 18 MCG
     Route: 055
     Dates: start: 2009, end: 2009
  2. SPIRIVA [Suspect]
     Indication: BRONCHITIS CHRONIC
  3. SPIRIVA [Suspect]
     Indication: EMPHYSEMA
  4. COMBIVENT [Suspect]
     Indication: CHRONIC OBSTRUCTIVE PULMONARY DISEASE
     Route: 055
     Dates: start: 2002
  5. COMBIVENT [Suspect]
     Indication: BRONCHITIS CHRONIC
  6. COMBIVENT [Suspect]
     Indication: EMPHYSEMA
  7. ALBUTEROL NEB [Concomitant]
     Indication: CHRONIC OBSTRUCTIVE PULMONARY DISEASE
     Route: 055
  8. ALBUTEROL NEB [Concomitant]
     Indication: BRONCHITIS CHRONIC
  9. ALBUTEROL NEB [Concomitant]
     Indication: EMPHYSEMA
  10. SYMBICORT [Concomitant]
     Indication: CHRONIC OBSTRUCTIVE PULMONARY DISEASE
     Route: 055
  11. SYMBICORT [Concomitant]
     Indication: BRONCHITIS CHRONIC
  12. SYMBICORT [Concomitant]
     Indication: EMPHYSEMA

REACTIONS (11)
  - Tremor [Not Recovered/Not Resolved]
  - Dizziness [Not Recovered/Not Resolved]
  - Urinary retention [Not Recovered/Not Resolved]
  - Palpitations [Not Recovered/Not Resolved]
  - Candida infection [Not Recovered/Not Resolved]
  - Onychoclasis [Recovered/Resolved]
  - Onychoclasis [Recovered/Resolved]
  - Hair disorder [Recovered/Resolved]
  - Vulvovaginal mycotic infection [Not Recovered/Not Resolved]
  - Chronic obstructive pulmonary disease [Not Recovered/Not Resolved]
  - Vulvovaginal burning sensation [Not Recovered/Not Resolved]
